FAERS Safety Report 9549554 (Version 1)
Quarter: 2013Q3

REPORT INFORMATION
  Report Type: Spontaneous
  Country: KR (occurrence: KR)
  Receive Date: 20130924
  Receipt Date: 20130924
  Transmission Date: 20140515
  Serious: Yes (Death, Hospitalization)
  Sender: FDA-Public Use
  Company Number: KR-BAXTER-2013BAX037429

PATIENT
  Age: 34 Year
  Sex: Female

DRUGS (1)
  1. ENDOXAN INJ 500MG [Suspect]
     Indication: SYSTEMIC LUPUS ERYTHEMATOSUS
     Route: 065

REACTIONS (2)
  - Sepsis [Fatal]
  - Posterior reversible encephalopathy syndrome [Not Recovered/Not Resolved]
